FAERS Safety Report 4703531-X (Version None)
Quarter: 2005Q2

REPORT INFORMATION
  Report Type: 
  Country: None (occurrence: None)
  Receive Date: 20050630
  Receipt Date: 20050624
  Transmission Date: 20051028
  Serious: Yes (Hospitalization)
  Sender: FDA-Public Use
  Company Number: US-BOEHRINGER INGELHEIM PHARMACEUTICALS, INC.-2005-BP-10795BP

PATIENT
  Sex: Female

DRUGS (7)
  1. AGGRENOX [Suspect]
     Indication: PROPHYLAXIS
     Route: 048
     Dates: start: 20000101, end: 20050522
  2. DIOVAN HCT [Concomitant]
  3. FOSAMAX [Concomitant]
  4. NORFLEX [Concomitant]
  5. PROTONIX [Concomitant]
  6. SYNTHROID [Concomitant]
  7. CARDIZEM [Concomitant]

REACTIONS (2)
  - HAEMATOMA [None]
  - KNEE ARTHROPLASTY [None]
